FAERS Safety Report 8872249 (Version 2)
Quarter: 2013Q2

REPORT INFORMATION
  Report Type: Report from Study
  Country: JP (occurrence: JP)
  Receive Date: 20121029
  Receipt Date: 20130429
  Transmission Date: 20140414
  Serious: Yes (Hospitalization, Other)
  Sender: FDA-Public Use
  Company Number: JP-VERTEX PHARMACEUTICAL INC.-AE-2012-009244

PATIENT
  Age: 67 Year
  Sex: Female

DRUGS (17)
  1. VX-950 (TELAPREVIR) [Suspect]
     Indication: CHRONIC HEPATITIS C
     Dosage: 2250 MG, QD
     Route: 048
     Dates: start: 20120502, end: 20120606
  2. VX-950 (TELAPREVIR) [Suspect]
     Dosage: 1500 MG, QD
     Route: 048
     Dates: start: 20120606, end: 20120615
  3. REBETOL [Suspect]
     Indication: CHRONIC HEPATITIS C
     Dosage: 600 MG, QD
     Route: 048
     Dates: start: 20120502, end: 20120524
  4. REBETOL [Suspect]
     Dosage: 400 MG, QD
     Route: 048
     Dates: start: 20120525, end: 20120606
  5. REBETOL [Suspect]
     Dosage: 200 MG, QD
     Route: 048
     Dates: start: 20120606, end: 20120615
  6. PEGINTERFERON ALFA-2B [Concomitant]
     Dosage: 1.379 ?G/KG, QW
     Route: 058
     Dates: start: 20120502, end: 20120509
  7. PEGINTERFERON ALFA-2B [Concomitant]
     Dosage: 1.2 ?G/KG, QW
     Route: 058
     Dates: start: 20120516, end: 20120516
  8. PEGINTERFERON ALFA-2B [Concomitant]
     Dosage: 1.379 ?G/KG, QW
     Route: 058
     Dates: start: 20120523, end: 20120613
  9. TALION [Concomitant]
     Dosage: 20 MG, QD
     Route: 048
     Dates: end: 20120912
  10. JUVELA N [Concomitant]
     Dosage: 600 MG, QD
     Route: 048
  11. GLAKAY [Concomitant]
     Dosage: 45 MG, QD
     Route: 048
  12. MARZULENE-S [Concomitant]
     Dosage: 1 G, QD
     Route: 048
     Dates: start: 20120501, end: 20120524
  13. VOLTAREN [Concomitant]
     Dosage: 37.5 MG, QD
     Route: 048
     Dates: start: 20120501, end: 20120512
  14. DETOMEFAN [Concomitant]
     Dosage: 30 MG, QD
     Route: 048
     Dates: start: 20120503, end: 20120510
  15. HUSCODE [Concomitant]
     Dosage: 2 DF, QD
     Route: 048
     Dates: start: 20120503, end: 20120503
  16. URSO [Concomitant]
     Dosage: 600 MG, QD
     Route: 048
  17. FUROSEMIDE [Concomitant]
     Dosage: 20 MG, QD
     Route: 048
     Dates: start: 20120618

REACTIONS (5)
  - Skin disorder [Not Recovered/Not Resolved]
  - Skin disorder [Not Recovered/Not Resolved]
  - Haemoglobin decreased [Not Recovered/Not Resolved]
  - Haemoglobin decreased [Not Recovered/Not Resolved]
  - Haemoglobin decreased [Recovered/Resolved]
